FAERS Safety Report 14493828 (Version 1)
Quarter: 2018Q1

REPORT INFORMATION
  Report Type: Spontaneous
  Country: US (occurrence: US)
  Receive Date: 20180205
  Receipt Date: 20180205
  Transmission Date: 20180509
  Serious: Yes (Life-Threatening, Hospitalization, Disabling)
  Sender: FDA-Public Use
  Company Number: None

PATIENT
  Age: 86 Year
  Sex: Female
  Weight: 81 kg

DRUGS (5)
  1. HEART VALVE [Concomitant]
  2. COUMADIN [Concomitant]
     Active Substance: WARFARIN SODIUM
  3. HIP REPLACEMENT [Concomitant]
  4. PACE MAKER [Concomitant]
  5. ELIQUIS [Suspect]
     Active Substance: APIXABAN
     Indication: CEREBROVASCULAR ACCIDENT PROPHYLAXIS
     Dosage: ?          QUANTITY:1 TABLET(S);?
     Route: 048
     Dates: start: 20171205

REACTIONS (6)
  - Haematochezia [None]
  - Pain in extremity [None]
  - Groin pain [None]
  - Incontinence [None]
  - Asthenia [None]
  - Rash [None]

NARRATIVE: CASE EVENT DATE: 20171225
